FAERS Safety Report 9698050 (Version 1)
Quarter: 2013Q4

REPORT INFORMATION
  Report Type: Spontaneous
  Country: CA (occurrence: None)
  Receive Date: 20131112
  Receipt Date: 20131112
  Transmission Date: 20140711
  Serious: Yes (Other)
  Sender: FDA-Public Use
  Company Number: CA-145486

PATIENT
  Age: 21 Year
  Sex: Female

DRUGS (1)
  1. WINRHO [Suspect]
     Indication: ABORTION THREATENED
     Dates: start: 20121231, end: 20121231

REACTIONS (2)
  - Abortion spontaneous [None]
  - Maternal exposure during pregnancy [None]
